FAERS Safety Report 6519954-2 (Version None)
Quarter: 2009Q4

REPORT INFORMATION
  Report Type: 
  Country: None (occurrence: None)
  Receive Date: 20091229
  Receipt Date: 20091217
  Transmission Date: 20100525
  Serious: Yes (Other)
  Sender: FDA-Public Use
  Company Number: BR-PFIZER INC-2008086563

PATIENT
  Sex: Female
  Weight: 59 kg

DRUGS (2)
  1. DEPO-PROVERA [Suspect]
     Indication: CONTRACEPTION
     Dosage: 150 MG, EVERY 12 WEEKS
     Route: 030
     Dates: start: 20070101
  2. VOLTAREN [Concomitant]
     Dosage: OCCASIONALLY

REACTIONS (1)
  - BLOOD GLUCOSE INCREASED [None]
